FAERS Safety Report 5942322-9 (Version None)
Quarter: 2008Q4

REPORT INFORMATION
  Report Type: 
  Country: None (occurrence: None)
  Receive Date: 20081105
  Receipt Date: 20081022
  Transmission Date: 20090506
  Serious: Yes (Death, Hospitalization)
  Sender: FDA-Public Use
  Company Number: IT-GENENTECH-269055

PATIENT
  Sex: Female

DRUGS (1)
  1. BEVACIZUMAB [Suspect]
     Indication: BREAST CANCER
     Dosage: 15 MG/KG, Q3W
     Route: 042
     Dates: start: 20080429

REACTIONS (6)
  - ANAEMIA [None]
  - DEATH [None]
  - ENCEPHALITIS [None]
  - MELAENA [None]
  - SHOCK HAEMORRHAGIC [None]
  - STAPHYLOCOCCAL INFECTION [None]
